FAERS Safety Report 15894020 (Version 2)
Quarter: 2019Q1

REPORT INFORMATION
  Report Type: Spontaneous
  Country: FR (occurrence: FR)
  Receive Date: 20190131
  Receipt Date: 20190208
  Transmission Date: 20190417
  Serious: Yes (Hospitalization)
  Sender: FDA-Public Use
  Company Number: FR-ACCORD-104749

PATIENT
  Age: 42 Year
  Sex: Male
  Weight: 99 kg

DRUGS (1)
  1. CLOZAPINE MYLAN [Suspect]
     Active Substance: CLOZAPINE
     Indication: PSYCHOTIC DISORDER
     Dosage: STRENGTH: 100 MG
     Route: 048
     Dates: end: 20180410

REACTIONS (2)
  - Neutropenia [Recovered/Resolved]
  - Tobacco interaction [Unknown]

NARRATIVE: CASE EVENT DATE: 201803
